FAERS Safety Report 8045975-7 (Version None)
Quarter: 2012Q1

REPORT INFORMATION
  Report Type: 
  Country: None (occurrence: None)
  Receive Date: 20120113
  Receipt Date: 20120106
  Transmission Date: 20120608
  Serious: Yes (Other)
  Sender: FDA-Public Use
  Company Number: US-US-EMD SERONO, INC.-7105825

PATIENT
  Sex: Female

DRUGS (1)
  1. SAIZEN [Suspect]
     Indication: GROWTH HORMONE DEFICIENCY
     Dates: start: 20111204, end: 20120106

REACTIONS (4)
  - SUICIDAL BEHAVIOUR [None]
  - SKIN ODOUR ABNORMAL [None]
  - IRRITABILITY [None]
  - ACNE [None]
